FAERS Safety Report 20966246 (Version 8)
Quarter: 2023Q1

REPORT INFORMATION
  Report Type: Report from Study
  Country: AR (occurrence: AR)
  Receive Date: 20220616
  Receipt Date: 20230324
  Transmission Date: 20230417
  Serious: Yes (Death, Hospitalization, Other)
  Sender: FDA-Public Use
  Company Number: AR-TAKEDA-2022TUS039992

PATIENT
  Age: 47 Year
  Sex: Female

DRUGS (1)
  1. VEDOLIZUMAB [Suspect]
     Active Substance: VEDOLIZUMAB
     Indication: Crohn^s disease
     Dosage: 300 MILLIGRAM
     Route: 042
     Dates: start: 20210823, end: 20221223

REACTIONS (8)
  - Sepsis [Fatal]
  - Seizure [Recovering/Resolving]
  - Renal impairment [Recovering/Resolving]
  - Gastrointestinal anastomotic leak [Recovering/Resolving]
  - Pyrexia [Recovering/Resolving]
  - Gastrointestinal pain [Recovering/Resolving]
  - Haemorrhoids thrombosed [Recovering/Resolving]
  - Vomiting [Recovering/Resolving]

NARRATIVE: CASE EVENT DATE: 20220607
